FAERS Safety Report 17741281 (Version 3)
Quarter: 2020Q2

REPORT INFORMATION
  Report Type: Spontaneous
  Country: GB (occurrence: GB)
  Receive Date: 20200504
  Receipt Date: 20200628
  Transmission Date: 20200714
  Serious: Yes (Congenital Anomaly, Other)
  Sender: FDA-Public Use
  Company Number: NVSC2020GB117219

PATIENT
  Sex: Male

DRUGS (2)
  1. VALPROATE [Suspect]
     Active Substance: VALPROIC ACID
     Indication: FOETAL EXPOSURE DURING PREGNANCY
     Dosage: MATERNAL DOSE: 1200 MG
     Route: 064
  2. CARBAMAZEPINE. [Suspect]
     Active Substance: CARBAMAZEPINE
     Indication: FOETAL EXPOSURE DURING PREGNANCY
     Dosage: MATERNAL DOSE: 400 MG
     Route: 064

REACTIONS (13)
  - Plagiocephaly [Unknown]
  - Foot deformity [Unknown]
  - Cerebral ventricle dilatation [Unknown]
  - Foetal exposure during pregnancy [Unknown]
  - Nervous system disorder [Unknown]
  - Dysmorphism [Unknown]
  - Scoliosis [Unknown]
  - Congenital eye disorder [Unknown]
  - Foetal anticonvulsant syndrome [Unknown]
  - Hypospadias [Unknown]
  - Developmental delay [Unknown]
  - Cryptorchism [Unknown]
  - X-linked chromosomal disorder [Unknown]
